FAERS Safety Report 4352445-6 (Version None)
Quarter: 2004Q2

REPORT INFORMATION
  Report Type: 
  Country: None (occurrence: None)
  Receive Date: 20040428
  Receipt Date: 20040419
  Transmission Date: 20050107
  Serious: Yes (Disabling)
  Sender: FDA-Public Use
  Company Number: 04H-062-0258047-00

PATIENT
  Age: 44 Year
  Sex: Male

DRUGS (3)
  1. MEPIVACAINE HCL [Suspect]
     Indication: RADICULOPATHY
     Dosage: 1 ML, ONCE, INTRASPINAL
     Route: 050
  2. TRIAMCINOLONE ACETONIDE [Suspect]
     Indication: RADICULOPATHY
     Dosage: 20 MG, ONCE, INTRASPINAL
     Route: 050
  3. IOTROLAN [Concomitant]

REACTIONS (5)
  - ANTERIOR SPINAL ARTERY SYNDROME [None]
  - INFARCTION [None]
  - PARALYSIS FLACCID [None]
  - QUADRIPLEGIA [None]
  - SENSORY LOSS [None]
